FAERS Safety Report 10013137 (Version 2)
Quarter: 2014Q2

REPORT INFORMATION
  Report Type: Spontaneous
  Country: GB (occurrence: GB)
  Receive Date: 20140314
  Receipt Date: 20140418
  Transmission Date: 20141212
  Serious: Yes (Other)
  Sender: FDA-Public Use
  Company Number: GB-ABBVIE-14P-167-1210157-00

PATIENT
  Sex: Female
  Weight: 69 kg

DRUGS (9)
  1. HUMIRA [Suspect]
     Indication: CROHN^S DISEASE
     Route: 058
     Dates: start: 20140131
  2. CHLORPHENAMINE [Concomitant]
     Indication: ADVERSE REACTION
     Dosage: FORM STRENGTH 2MG/5ML; 4/ DAY EVERY 4-6 HOURS
     Dates: start: 20140131
  3. CLOTRIMAZOLE [Concomitant]
     Indication: VULVOVAGINAL CANDIDIASIS
     Dosage: 3/DAY WHEN NECESSARY
     Route: 061
     Dates: start: 20140130, end: 20140205
  4. FLUCONAZOLE [Concomitant]
     Indication: ORAL CANDIDIASIS
     Route: 048
     Dates: start: 20140131, end: 20140206
  5. HYOSCINE-N-BUTYL BROMIDE [Concomitant]
     Indication: PRODUCT USED FOR UNKNOWN INDICATION
     Route: 048
     Dates: start: 20140131
  6. PARACETAMOL [Concomitant]
     Indication: PRODUCT USED FOR UNKNOWN INDICATION
     Dosage: MAX OF 4 GRAMS IN 24 HOURS
     Route: 048
     Dates: start: 20140131
  7. PETHIDINE [Concomitant]
     Indication: PRODUCT USED FOR UNKNOWN INDICATION
     Dosage: 50-100 MG DOSE; EVERY 4-6 HOURS WHEN NECESSARY
     Route: 048
     Dates: start: 20140131
  8. ZOPICLONE [Concomitant]
     Indication: INSOMNIA
     Dosage: NOCTE- 1/DAY WHEN NECESSARY
     Dates: start: 20140131, end: 20140204
  9. ZOPICLONE [Concomitant]
     Indication: ABDOMINAL PAIN

REACTIONS (6)
  - Local swelling [Not Recovered/Not Resolved]
  - Swelling face [Not Recovered/Not Resolved]
  - Peripheral swelling [Not Recovered/Not Resolved]
  - Furuncle [Not Recovered/Not Resolved]
  - Tenderness [Not Recovered/Not Resolved]
  - Hypertension [Not Recovered/Not Resolved]
